FAERS Safety Report 13803882 (Version 1)
Quarter: 2017Q3

REPORT INFORMATION
  Report Type: Spontaneous
  Country: US (occurrence: US)
  Receive Date: 20170728
  Receipt Date: 20170728
  Transmission Date: 20171127
  Serious: No
  Sender: FDA-Public Use
  Company Number: US-ABBVIE-16P-163-1796838-00

PATIENT
  Age: 66 Year
  Sex: Female

DRUGS (4)
  1. BENTYL [Concomitant]
     Active Substance: DICYCLOMINE HYDROCHLORIDE
     Indication: PRODUCT USED FOR UNKNOWN INDICATION
  2. SYNTHROID [Suspect]
     Active Substance: LEVOTHYROXINE SODIUM
     Dosage: ALTERNATES WITH 75 MCG
     Route: 048
     Dates: start: 2013
  3. NEXIUM (NON-ABBVIE) [Concomitant]
     Indication: PRODUCT USED FOR UNKNOWN INDICATION
  4. SYNTHROID [Suspect]
     Active Substance: LEVOTHYROXINE SODIUM
     Indication: HYPOTHYROIDISM
     Dosage: ALTERNATES WITH 88 MCG
     Route: 048
     Dates: start: 2013

REACTIONS (3)
  - Alopecia [Recovered/Resolved]
  - Ageusia [Not Recovered/Not Resolved]
  - Palpitations [Recovered/Resolved]
